FAERS Safety Report 14878009 (Version 3)
Quarter: 2018Q2

REPORT INFORMATION
  Report Type: Spontaneous
  Country: GB (occurrence: GB)
  Receive Date: 20180510
  Receipt Date: 20180620
  Transmission Date: 20180711
  Serious: Yes (Other)
  Sender: FDA-Public Use
  Company Number: GB-TEVA-2018-GB-891681

PATIENT
  Age: 72 Year
  Sex: Male

DRUGS (3)
  1. RANITIDINE. [Concomitant]
     Active Substance: RANITIDINE
     Route: 065
  2. AMOXICILLIN. [Suspect]
     Active Substance: AMOXICILLIN
     Indication: LOWER RESPIRATORY TRACT INFECTION
     Dosage: 1500 MILLIGRAM DAILY;
     Route: 048
     Dates: start: 20171227
  3. BRICANYL [Concomitant]
     Active Substance: TERBUTALINE SULFATE
     Route: 065

REACTIONS (7)
  - Hypersensitivity [Recovered/Resolved]
  - Rash erythematous [Recovered/Resolved]
  - Pallor [Recovered/Resolved]
  - Syncope [Recovered/Resolved]
  - Swelling [Recovered/Resolved]
  - Delirium [Recovered/Resolved]
  - Blindness transient [Recovered/Resolved]

NARRATIVE: CASE EVENT DATE: 20171227
